FAERS Safety Report 8265866-6 (Version None)
Quarter: 2012Q2

REPORT INFORMATION
  Report Type: 
  Country: None (occurrence: None)
  Receive Date: 20120406
  Receipt Date: 20120330
  Transmission Date: 20120825
  Serious: Yes (Other)
  Sender: FDA-Public Use
  Company Number: US-GLAXOSMITHKLINE-A0972437A

PATIENT
  Age: 42 Year
  Sex: Male
  Weight: 84.1 kg

DRUGS (5)
  1. LEXAPRO [Suspect]
     Indication: DEPRESSION
     Route: 065
  2. UNSPECIFIED MEDICATION [Suspect]
     Route: 065
  3. WELLBUTRIN [Suspect]
     Indication: DEPRESSION
     Route: 048
  4. TRAMADOL HCL [Suspect]
     Indication: PAIN
     Route: 065
  5. CYMBALTA [Suspect]
     Indication: DEPRESSION
     Route: 048

REACTIONS (5)
  - CEREBROVASCULAR ACCIDENT [None]
  - PAIN [None]
  - MUSCLE SPASTICITY [None]
  - MUSCULOSKELETAL STIFFNESS [None]
  - DRUG INEFFECTIVE [None]
